FAERS Safety Report 5123486-6 (Version None)
Quarter: 2006Q4

REPORT INFORMATION
  Report Type: 
  Country: None (occurrence: None)
  Receive Date: 20061009
  Receipt Date: 20060818
  Transmission Date: 20070319
  Serious: Yes (Other)
  Sender: FDA-Public Use
  Company Number: JP-MERCK-0608USA05307

PATIENT
  Age: 76 Year
  Sex: Female

DRUGS (6)
  1. FOSAMAX [Suspect]
     Indication: OSTEOPOROSIS
     Route: 048
     Dates: start: 20060101, end: 20060808
  2. TAGAMET [Concomitant]
     Route: 065
     Dates: end: 20060808
  3. LAFUTIDINE [Concomitant]
     Route: 065
     Dates: end: 20060808
  4. ETODOLAC [Concomitant]
     Route: 065
     Dates: end: 20060808
  5. LOXONIN [Concomitant]
     Indication: MUSCULOSKELETAL PAIN
     Route: 048
     Dates: end: 20060808
  6. TEPRENONE [Concomitant]
     Indication: PROPHYLAXIS AGAINST GASTROINTESTINAL ULCER
     Route: 048

REACTIONS (8)
  - ANOREXIA [None]
  - DIZZINESS [None]
  - HEPATIC FUNCTION ABNORMAL [None]
  - HYPERHIDROSIS [None]
  - NECK PAIN [None]
  - OEDEMA PERIPHERAL [None]
  - PYREXIA [None]
  - RASH [None]
